FAERS Safety Report 4932451-0 (Version None)
Quarter: 2006Q1

REPORT INFORMATION
  Report Type: 
  Country: None (occurrence: None)
  Receive Date: 20060301
  Receipt Date: 20060209
  Transmission Date: 20060701
  Serious: Yes (Hospitalization)
  Sender: FDA-Public Use
  Company Number: 2006020693

PATIENT
  Age: 15 Year
  Sex: Male

DRUGS (6)
  1. NELFINAVIR MESILATE (NELFINAVIR MESILATE) [Suspect]
     Indication: HIV TEST POSITIVE
  2. ABACAVIR [Suspect]
     Indication: HIV TEST POSITIVE
  3. LAMIVUDINE [Suspect]
     Indication: HIV TEST POSITIVE
  4. STAVUDINE [Suspect]
     Indication: HIV TEST POSITIVE
  5. DIDANOSINE [Suspect]
     Indication: HIV TEST POSITIVE
  6. EFAVIRENZ [Suspect]
     Indication: HIV TEST POSITIVE

REACTIONS (4)
  - CD4 LYMPHOCYTES DECREASED [None]
  - DEPRESSION [None]
  - GYNAECOMASTIA [None]
  - THERAPY NON-RESPONDER [None]
